FAERS Safety Report 9963055 (Version 2)
Quarter: 2014Q2

REPORT INFORMATION
  Report Type: Spontaneous
  Country: IT (occurrence: IT)
  Receive Date: 20140305
  Receipt Date: 20140411
  Transmission Date: 20141212
  Serious: Yes (Hospitalization)
  Sender: FDA-Public Use
  Company Number: IT-ACTAVIS-2014-03594

PATIENT
  Age: 86 Year
  Sex: Male
  Weight: 93 kg

DRUGS (3)
  1. GEMBIN [Suspect]
     Indication: PANCREATIC CARCINOMA METASTATIC
     Dosage: 1200 MG, CYCLICAL
     Route: 042
     Dates: start: 20140126, end: 20140126
  2. ABRAXANE [Suspect]
     Indication: PANCREATIC CARCINOMA METASTATIC
     Dosage: 125 MG, CYCLICAL
     Route: 042
     Dates: start: 20140126, end: 20140126
  3. TIKLID [Concomitant]
     Indication: ISCHAEMIC HEART DISEASE PROPHYLAXIS
     Dosage: 250 MG, UNK
     Route: 065

REACTIONS (5)
  - Ischaemic stroke [Recovering/Resolving]
  - Hemiplegia [Recovering/Resolving]
  - Aphasia [Recovering/Resolving]
  - Asthenia [Recovering/Resolving]
  - Paraesthesia [Recovering/Resolving]
